FAERS Safety Report 26074971 (Version 1)
Quarter: 2025Q4

REPORT INFORMATION
  Report Type: Spontaneous
  Country: US (occurrence: None)
  Receive Date: 20251120
  Receipt Date: 20251120
  Transmission Date: 20260118
  Serious: Yes (Other)
  Sender: FDA-CTU
  Company Number: None

PATIENT
  Age: 34 Year
  Sex: Female

DRUGS (3)
  1. CIPRO [Suspect]
     Active Substance: CIPROFLOXACIN HYDROCHLORIDE
     Indication: Urinary tract infection
     Dosage: OTHER QUANTITY : 1 TABLESPOON(S);?FREQUENCY : EVERY 12 HOURS;?
     Route: 048
     Dates: start: 20251014, end: 20251015
  2. VITAMIN D3 [Concomitant]
     Active Substance: CHOLECALCIFEROL
  3. MAGNESIUM [Concomitant]
     Active Substance: MAGNESIUM

REACTIONS (13)
  - Panic attack [None]
  - Dyspnoea [None]
  - Therapy cessation [None]
  - Pain in extremity [None]
  - Musculoskeletal stiffness [None]
  - Arthropathy [None]
  - Arthralgia [None]
  - Anxiety [None]
  - Brain fog [None]
  - Fatigue [None]
  - Peripheral coldness [None]
  - Neck pain [None]
  - Feeling jittery [None]

NARRATIVE: CASE EVENT DATE: 20251015
